FAERS Safety Report 7476637-2 (Version None)
Quarter: 2011Q2

REPORT INFORMATION
  Report Type: 
  Country: None (occurrence: None)
  Receive Date: 20110510
  Receipt Date: 20110510
  Transmission Date: 20111010
  Serious: Yes (Life-Threatening)
  Sender: FDA-Public Use
  Company Number: None

PATIENT
  Sex: Female
  Weight: 56.6996 kg

DRUGS (1)
  1. AMIODARONE HCL [Suspect]
     Indication: ATRIAL FIBRILLATION
     Dosage: 200MG 1 PER DAY PO
     Route: 048
     Dates: start: 20101204, end: 20110406

REACTIONS (8)
  - INSOMNIA [None]
  - WHEEZING [None]
  - COUGH [None]
  - WEIGHT DECREASED [None]
  - RESPIRATORY DISORDER [None]
  - OEDEMA PERIPHERAL [None]
  - FATIGUE [None]
  - DECREASED APPETITE [None]
